FAERS Safety Report 16334228 (Version 1)
Quarter: 2019Q2

REPORT INFORMATION
  Report Type: Spontaneous
  Country: CN (occurrence: CN)
  Receive Date: 20190520
  Receipt Date: 20190520
  Transmission Date: 20190711
  Serious: Yes (Hospitalization, Other)
  Sender: FDA-Public Use
  Company Number: CN-PFIZER INC-2019205718

PATIENT
  Age: 54 Year
  Sex: Female

DRUGS (2)
  1. CENTRUM [Concomitant]
     Active Substance: VITAMINS
     Dosage: UNK
     Route: 048
  2. NORVASC [Suspect]
     Active Substance: AMLODIPINE BESYLATE
     Indication: HYPERTENSION
     Dosage: 1 TABLET EVERY 2-3 DAYS
     Route: 048
     Dates: start: 2017

REACTIONS (5)
  - Joint swelling [Unknown]
  - Off label use [Unknown]
  - Nephrolithiasis [Unknown]
  - Oedema [Unknown]
  - Swelling face [Unknown]

NARRATIVE: CASE EVENT DATE: 2019
